FAERS Safety Report 20045639 (Version 3)
Quarter: 2021Q4

REPORT INFORMATION
  Report Type: Spontaneous
  Country: RU (occurrence: RU)
  Receive Date: 20211108
  Receipt Date: 20211125
  Transmission Date: 20220303
  Serious: Yes (Other)
  Sender: FDA-Public Use
  Company Number: RU-NOVARTISPH-NVSC2021RU253784

PATIENT
  Age: 55 Year
  Sex: Male

DRUGS (3)
  1. ACETYLCYSTEINE [Suspect]
     Active Substance: ACETYLCYSTEINE
     Indication: Pneumonia
     Dosage: UNK
     Route: 065
     Dates: start: 20210720
  2. DEXAMETHASONE [Suspect]
     Active Substance: DEXAMETHASONE
     Indication: Pneumonia
     Dosage: UNK
     Route: 065
     Dates: start: 20210720
  3. DALTEPARIN [Suspect]
     Active Substance: DALTEPARIN
     Indication: Pneumonia
     Dosage: UNK
     Route: 065
     Dates: start: 20210720

REACTIONS (1)
  - Drug-induced liver injury [Recovered/Resolved]

NARRATIVE: CASE EVENT DATE: 20210727
